FAERS Safety Report 24353242 (Version 4)
Quarter: 2024Q4

REPORT INFORMATION
  Report Type: Report from Study
  Country: FR (occurrence: FR)
  Receive Date: 20240923
  Receipt Date: 20241014
  Transmission Date: 20250115
  Serious: Yes (Life-Threatening)
  Sender: NOVARTIS
  Company Number: FR-002147023-NVSC2024FR188645

PATIENT
  Age: 69 Year
  Sex: Female

DRUGS (6)
  1. KISQALI [Suspect]
     Active Substance: RIBOCICLIB
     Indication: Product used for unknown indication
     Dosage: 600 MG (THERAPY DURATION:21 DAYS)
     Route: 065
     Dates: start: 20240816, end: 20240905
  2. FULVESTRANT [Suspect]
     Active Substance: FULVESTRANT
     Indication: Product used for unknown indication
     Dosage: 250 MG ( FOR A TOTAL NUMBER OF INJECTION OF 6 AND A CUMULATIVE DOSE OF 12600 MG)
     Route: 030
     Dates: start: 20240813, end: 20240913
  3. PREDNISONE [Concomitant]
     Active Substance: PREDNISONE
     Indication: Psoriatic arthropathy
     Dosage: 20 MG, QD
     Route: 048
     Dates: start: 20240621, end: 20240904
  4. PREDNISONE [Concomitant]
     Active Substance: PREDNISONE
     Indication: Rheumatic disorder
     Dosage: 15 MG, QD
     Route: 048
     Dates: start: 20240905
  5. ACETAMINOPHEN [Concomitant]
     Active Substance: ACETAMINOPHEN
     Indication: Psoriatic arthropathy
     Dosage: 500 MG
     Route: 048
     Dates: start: 20240701, end: 20240814
  6. PEMBROLIZUMAB [Concomitant]
     Active Substance: PEMBROLIZUMAB
     Indication: Breast cancer
     Dosage: 400 MG (EVERY 28 DAYS)
     Route: 042
     Dates: start: 20220809, end: 20240814

REACTIONS (1)
  - Transaminases increased [Recovered/Resolved]

NARRATIVE: CASE EVENT DATE: 20240913
